FAERS Safety Report 12522906 (Version 2)
Quarter: 2016Q3

REPORT INFORMATION
  Report Type: Spontaneous
  Country: JP (occurrence: JP)
  Receive Date: 20160701
  Receipt Date: 20160729
  Transmission Date: 20161109
  Serious: Yes (Hospitalization)
  Sender: FDA-Public Use
  Company Number: JP-ASTRAZENECA-2016SE71743

PATIENT
  Age: 67 Year
  Sex: Female

DRUGS (5)
  1. ELIQUIS [Concomitant]
     Active Substance: APIXABAN
     Indication: ANTICOAGULANT THERAPY
     Route: 048
  2. MEROPEN [Suspect]
     Active Substance: MEROPENEM
     Indication: MENINGITIS
     Route: 042
     Dates: start: 20160104, end: 20160201
  3. UBRETID [Concomitant]
     Active Substance: DISTIGMINE BROMIDE
     Indication: URINARY RETENTION
     Route: 048
     Dates: start: 20160116
  4. EBRANTIL [Concomitant]
     Active Substance: URAPIDIL
     Indication: URINARY RETENTION
     Route: 048
     Dates: start: 20160116
  5. TAKEPRON [Suspect]
     Active Substance: LANSOPRAZOLE
     Indication: GASTROOESOPHAGEAL REFLUX DISEASE
     Dosage: 15.0MG UNKNOWN
     Route: 048
     Dates: start: 20160107, end: 20160201

REACTIONS (1)
  - Tubulointerstitial nephritis [Recovering/Resolving]

NARRATIVE: CASE EVENT DATE: 20160201
